FAERS Safety Report 7617651-3 (Version None)
Quarter: 2011Q3

REPORT INFORMATION
  Report Type: 
  Country: None (occurrence: None)
  Receive Date: 20110718
  Receipt Date: 20110706
  Transmission Date: 20111222
  Serious: Yes (Death)
  Sender: FDA-Public Use
  Company Number: US-JNJFOC-2008053255

PATIENT
  Age: 3 Month
  Sex: Female

DRUGS (3)
  1. PSEUDOEPHEDRINE HCL [Suspect]
     Indication: PRODUCT USED FOR UNKNOWN INDICATION
     Dosage: DAILY DOSE TEXT: UNSPECIFIED
     Route: 048
  2. DEXTROMETHORPHAN HYDROBROMIDE [Suspect]
     Indication: PRODUCT USED FOR UNKNOWN INDICATION
     Dosage: DAILY DOSE TEXT: UNSPECIFIED
     Route: 048
  3. CARBINOXAMINE MALEATE [Suspect]
     Indication: PRODUCT USED FOR UNKNOWN INDICATION
     Dosage: DAILY DOSE TEXT: UNSPECIFIED
     Route: 065

REACTIONS (2)
  - PNEUMONIA VIRAL [None]
  - WRONG DRUG ADMINISTERED [None]
